FAERS Safety Report 8446089-4 (Version None)
Quarter: 2012Q2

REPORT INFORMATION
  Report Type: 
  Country: None (occurrence: None)
  Receive Date: 20120618
  Receipt Date: 20120611
  Transmission Date: 20120825
  Serious: Yes (Other)
  Sender: FDA-Public Use
  Company Number: BR-PFIZER INC-2012140949

PATIENT
  Age: 94 Year
  Sex: Female

DRUGS (1)
  1. XALATAN [Suspect]
     Indication: GLAUCOMA
     Dosage: 1 DROP EACH EYE, 2X/DAY
     Route: 047
     Dates: start: 20100611

REACTIONS (2)
  - BLINDNESS [None]
  - BLINDNESS UNILATERAL [None]
